FAERS Safety Report 5047283-5 (Version None)
Quarter: 2006Q3

REPORT INFORMATION
  Report Type: 
  Country: None (occurrence: None)
  Receive Date: 20060711
  Receipt Date: 20060629
  Transmission Date: 20061208
  Serious: Yes (Other)
  Sender: FDA-Public Use
  Company Number: US-JNJFOC-20060700394

PATIENT

DRUGS (1)
  1. REMICADE [Suspect]
     Indication: PSORIASIS
     Dosage: RECEIVED TWO DOSES

REACTIONS (2)
  - DISEASE RECURRENCE [None]
  - TUBERCULOSIS [None]
